FAERS Safety Report 4990489-1 (Version None)
Quarter: 2006Q2

REPORT INFORMATION
  Report Type: 
  Country: None (occurrence: None)
  Receive Date: 20060427
  Receipt Date: 20060417
  Transmission Date: 20061013
  Serious: Yes (Other)
  Sender: FDA-Public Use
  Company Number: 2006053522

PATIENT
  Sex: Female

DRUGS (3)
  1. PROVERA [Suspect]
     Indication: HORMONE REPLACEMENT THERAPY
     Dosage: (10 MG), ORAL
     Route: 048
     Dates: start: 19970818, end: 20030109
  2. PREMARIN [Suspect]
     Indication: HORMONE REPLACEMENT THERAPY
     Dosage: (1.25 MG)
     Dates: start: 19970818, end: 20030109
  3. PREMPRO [Suspect]
     Indication: HORMONE REPLACEMENT THERAPY
     Dosage: (0.625 MG)
     Dates: start: 19970818, end: 20030109

REACTIONS (1)
  - BREAST CANCER FEMALE [None]
